FAERS Safety Report 7094450-5 (Version None)
Quarter: 2010Q4

REPORT INFORMATION
  Report Type: 
  Country: None (occurrence: None)
  Receive Date: 20101110
  Receipt Date: 20101028
  Transmission Date: 20110411
  Serious: Yes (Hospitalization)
  Sender: FDA-Public Use
  Company Number: PHHY2009ZA27989

PATIENT
  Sex: Female
  Weight: 116 kg

DRUGS (5)
  1. GLEEVEC [Suspect]
     Indication: CHRONIC MYELOID LEUKAEMIA
     Dosage: 400 MG, QD
     Route: 048
     Dates: start: 20100901
  2. GLEEVEC [Suspect]
     Dosage: 400 MG/DAY
     Dates: start: 20061210, end: 20061230
  3. CORTISONE [Concomitant]
     Dosage: UNK
     Route: 042
  4. CITALOPRAM HYDROBROMIDE [Concomitant]
     Indication: DEPRESSION
     Dosage: 20 MG, UNK
     Route: 048
  5. ALLOPURINOL [Concomitant]
     Indication: GOUT
     Dosage: 100 MG UNK
     Route: 048

REACTIONS (8)
  - BODY TEMPERATURE INCREASED [None]
  - DELIRIUM [None]
  - DYSARTHRIA [None]
  - FEELING HOT [None]
  - HYPERSENSITIVITY [None]
  - RASH [None]
  - SWELLING [None]
  - URTICARIA [None]
